FAERS Safety Report 25104520 (Version 1)
Quarter: 2025Q1

REPORT INFORMATION
  Report Type: Spontaneous
  Country: TN (occurrence: TN)
  Receive Date: 20250321
  Receipt Date: 20250321
  Transmission Date: 20250408
  Serious: Yes (Other)
  Sender: STRIDES
  Company Number: TN-STRIDES ARCOLAB LIMITED-2025SP003540

PATIENT

DRUGS (1)
  1. METHOTREXATE [Suspect]
     Active Substance: METHOTREXATE
     Indication: Juvenile idiopathic arthritis
     Route: 065

REACTIONS (1)
  - Hepatic cytolysis [Recovered/Resolved]
